FAERS Safety Report 10070400 (Version 2)
Quarter: 2014Q2

REPORT INFORMATION
  Report Type: Spontaneous
  Country: AU (occurrence: AU)
  Receive Date: 20140410
  Receipt Date: 20140410
  Transmission Date: 20141212
  Serious: Yes (Hospitalization)
  Sender: FDA-Public Use
  Company Number: AU-DSJP-DSU-2011-04446-1

PATIENT
  Sex: 0

DRUGS (1)
  1. OLMETEC 40 MG [Suspect]
     Indication: PRODUCT USED FOR UNKNOWN INDICATION
     Dosage: QD
     Route: 048
     Dates: start: 20100621, end: 20110315

REACTIONS (7)
  - Enterocolitis [Recovered/Resolved]
  - Gastritis [Recovered/Resolved]
  - Abdominal distension [Recovered/Resolved]
  - Malabsorption [Recovered/Resolved]
  - Renal failure acute [Recovered/Resolved]
  - Diarrhoea [Recovered/Resolved]
  - Abdominal pain [Recovered/Resolved]
